FAERS Safety Report 18967843 (Version 1)
Quarter: 2021Q1

REPORT INFORMATION
  Report Type: Spontaneous
  Country: US (occurrence: US)
  Receive Date: 20210303
  Receipt Date: 20210303
  Transmission Date: 20210420
  Serious: Yes (Hospitalization, Other)
  Sender: FDA-Public Use
  Company Number: None

PATIENT
  Age: 75 Year
  Sex: Male

DRUGS (1)
  1. CEFTAROLINE (CEFTAROLINE FOSAMIL) [Suspect]
     Active Substance: CEFTAROLINE FOSAMIL
     Dosage: ?          OTHER ROUTE:IV?
     Route: 042
     Dates: start: 20201202, end: 20201207

REACTIONS (6)
  - Delirium [None]
  - Rash [None]
  - Eosinophilia [None]
  - Urticaria [None]
  - Pruritus [None]
  - Pyrexia [None]

NARRATIVE: CASE EVENT DATE: 20201207
